FAERS Safety Report 12326613 (Version 1)
Quarter: 2016Q2

REPORT INFORMATION
  Report Type: Spontaneous
  Country: US (occurrence: US)
  Receive Date: 20160503
  Receipt Date: 20160503
  Transmission Date: 20160815
  Serious: No
  Sender: FDA-Public Use
  Company Number: US-JAZZ-2015-US-012395

PATIENT
  Sex: Female

DRUGS (1)
  1. XYREM [Suspect]
     Active Substance: SODIUM OXYBATE
     Indication: NARCOLEPSY
     Dosage: 2.25 G, BID
     Route: 048

REACTIONS (5)
  - Feeling drunk [Recovered/Resolved]
  - Snoring [Recovered/Resolved]
  - Discomfort [Recovered/Resolved]
  - Hypersomnia [Recovered/Resolved]
  - Movement disorder [Recovered/Resolved]
